FAERS Safety Report 23992604 (Version 1)
Quarter: 2024Q2

REPORT INFORMATION
  Report Type: Spontaneous
  Country: US (occurrence: US)
  Receive Date: 20240620
  Receipt Date: 20240620
  Transmission Date: 20240715
  Serious: No
  Sender: FDA-Public Use
  Company Number: US-AUROBINDO-AUR-APL-2023-074158

PATIENT
  Age: 9 Month
  Sex: Male
  Weight: 10 kg

DRUGS (2)
  1. CLINDAMYCIN PALMITATE HYDROCHLORIDE [Suspect]
     Active Substance: CLINDAMYCIN PALMITATE HYDROCHLORIDE
     Indication: Surgery
     Dosage: 7 MILLILITER, 3 TIMES A DAY FOR 10 DAYS
     Route: 048
     Dates: start: 20231114
  2. CLINDAMYCIN PALMITATE HYDROCHLORIDE [Suspect]
     Active Substance: CLINDAMYCIN PALMITATE HYDROCHLORIDE
     Indication: Staphylococcal infection

REACTIONS (2)
  - Vomiting [Unknown]
  - Product odour abnormal [Unknown]

NARRATIVE: CASE EVENT DATE: 20231114
